FAERS Safety Report 17362990 (Version 2)
Quarter: 2020Q1

REPORT INFORMATION
  Report Type: Report from Study
  Country: NL (occurrence: NL)
  Receive Date: 20200203
  Receipt Date: 20200206
  Transmission Date: 20200409
  Serious: Yes (Other)
  Sender: FDA-Public Use
  Company Number: NL-BIOGEN-2020BI00832785

PATIENT
  Sex: Male

DRUGS (8)
  1. FAMPYRA [Suspect]
     Active Substance: DALFAMPRIDINE
     Indication: MULTIPLE SCLEROSIS
     Route: 065
     Dates: start: 20191026, end: 20191108
  2. METHYLPREDNISOLON [Concomitant]
     Active Substance: METHYLPREDNISOLONE
     Indication: PROPHYLAXIS
     Dosage: UNK
     Route: 065
     Dates: start: 20160808, end: 20160813
  3. METHYLPREDNISOLON [Concomitant]
     Active Substance: METHYLPREDNISOLONE
     Dosage: UNK
     Route: 065
     Dates: start: 20160705, end: 20160707
  4. LEMTRADA [Suspect]
     Active Substance: ALEMTUZUMAB
     Indication: PRODUCT USED FOR UNKNOWN INDICATION
     Route: 065
  5. GILENYA [Suspect]
     Active Substance: FINGOLIMOD HYDROCHLORIDE
     Indication: MULTIPLE SCLEROSIS
     Dosage: 0.5 MG, QD
     Route: 048
     Dates: start: 20140904, end: 20151126
  6. ZYRTEC [Concomitant]
     Active Substance: CETIRIZINE HYDROCHLORIDE
     Indication: PROPHYLAXIS
     Dosage: UNK
     Route: 065
     Dates: start: 20160808, end: 20160813
  7. TAVEGYL [Concomitant]
     Active Substance: CLEMASTINE FUMARATE
     Indication: PROPHYLAXIS
     Dosage: UNK
     Route: 065
     Dates: start: 20160809, end: 20160813
  8. VALACICLOVIR [Concomitant]
     Active Substance: VALACYCLOVIR HYDROCHLORIDE
     Indication: PROPHYLAXIS
     Dosage: UNK
     Route: 065
     Dates: start: 20160808, end: 20160908

REACTIONS (6)
  - Hypertension [Recovered/Resolved]
  - Cervical spinal stenosis [Not Recovered/Not Resolved]
  - Abdominal discomfort [Recovered/Resolved]
  - Influenza like illness [Recovered/Resolved]
  - Urinary tract infection [Recovered/Resolved]
  - Influenza [Recovered/Resolved]

NARRATIVE: CASE EVENT DATE: 20150422
